FAERS Safety Report 15742538 (Version 4)
Quarter: 2021Q3

REPORT INFORMATION
  Report Type: Spontaneous
  Country: US (occurrence: US)
  Receive Date: 20181219
  Receipt Date: 20210720
  Transmission Date: 20211014
  Serious: Yes (Death, Hospitalization, Other)
  Sender: FDA-Public Use
  Company Number: PHEH2018US053532

PATIENT
  Age: 77 Year
  Sex: Female

DRUGS (1)
  1. TASIGNA [Suspect]
     Active Substance: NILOTINIB
     Indication: CHRONIC MYELOID LEUKAEMIA
     Dosage: 2 DF, BID
     Route: 048
     Dates: start: 20160420, end: 201802

REACTIONS (24)
  - Intermittent claudication [Unknown]
  - Death [Fatal]
  - Urinary tract infection [Unknown]
  - Left ventricular failure [Unknown]
  - Arteriosclerosis [Unknown]
  - Fall [Unknown]
  - Injury [Unknown]
  - Chronic obstructive pulmonary disease [Unknown]
  - Pain in extremity [Unknown]
  - Arthralgia [Unknown]
  - Pain [Unknown]
  - Pulmonary oedema [Unknown]
  - Peripheral arterial occlusive disease [Unknown]
  - Hypertension [Unknown]
  - Oedema peripheral [Unknown]
  - Peripheral vascular disorder [Unknown]
  - Diabetes mellitus [Unknown]
  - Diabetic neuropathy [Unknown]
  - Gangrene [Unknown]
  - Cardiac failure congestive [Unknown]
  - Peripheral artery stenosis [Unknown]
  - Anxiety [Unknown]
  - Emotional distress [Unknown]
  - Haematuria [Unknown]

NARRATIVE: CASE EVENT DATE: 20160509
